FAERS Safety Report 6785690-0 (Version None)
Quarter: 2010Q2

REPORT INFORMATION
  Report Type: 
  Country: None (occurrence: None)
  Receive Date: 20100621
  Receipt Date: 20100621
  Transmission Date: 20101027
  Serious: Yes (Hospitalization)
  Sender: FDA-Public Use
  Company Number: None

PATIENT
  Age: 70 Year
  Sex: Male
  Weight: 59.4 kg

DRUGS (16)
  1. DIGOXIN [Suspect]
     Indication: ATRIAL FIBRILLATION
     Dosage: 250MCG DAILY PO  CHRONIC
     Route: 048
  2. GLARGINE [Concomitant]
  3. M.V.I. [Concomitant]
  4. CARVEDILOL [Concomitant]
  5. COUMADIN [Concomitant]
  6. SIMCOR [Concomitant]
  7. METFORMIN HCL [Concomitant]
  8. CANDESARTAN/HCTZ [Concomitant]
  9. VITAMIN B-12 [Concomitant]
  10. LASIX [Concomitant]
  11. PRILOSEC [Concomitant]
  12. ASPIRIN [Concomitant]
  13. ISORDIL [Concomitant]
  14. POTASSIUM CHLORIDE [Concomitant]
  15. D-3 [Concomitant]
  16. CO Q-10 [Concomitant]

REACTIONS (9)
  - BRADYCARDIA [None]
  - DIARRHOEA [None]
  - DRUG TOXICITY [None]
  - DYSPNOEA [None]
  - HYPERKALAEMIA [None]
  - NAUSEA [None]
  - RENAL FAILURE ACUTE [None]
  - SYNCOPE [None]
  - VOMITING [None]
